FAERS Safety Report 19021305 (Version 1)
Quarter: 2021Q1

REPORT INFORMATION
  Report Type: Report from Study
  Country: JP (occurrence: JP)
  Receive Date: 20210317
  Receipt Date: 20210317
  Transmission Date: 20210420
  Serious: Yes (Other)
  Sender: FDA-Public Use
  Company Number: JP-ROCHE-2789800

PATIENT
  Age: 68 Year
  Sex: Male
  Weight: 54.8 kg

DRUGS (6)
  1. CYCLOPHOSPHAMIDE. [Suspect]
     Active Substance: CYCLOPHOSPHAMIDE
     Indication: DIFFUSE LARGE B-CELL LYMPHOMA
     Dosage: DATE OF THE MOST RECENT DOSE OF CYCLOPHOSPHAMIDE (1125 MG) PRIOR TO SAE: 04/DEC/2018
     Route: 042
     Dates: start: 20180807
  2. PREDNISONE. [Suspect]
     Active Substance: PREDNISONE
     Indication: DIFFUSE LARGE B-CELL LYMPHOMA
     Dosage: DATE OF THE MOST RECENT DOSE OF PREDNISONE (100 MG) PRIOR TO SAE: 07/DEC/2018
     Route: 048
     Dates: start: 20180806
  3. POLATUZUMAB VEDOTIN. [Suspect]
     Active Substance: POLATUZUMAB VEDOTIN
     Indication: DIFFUSE LARGE B-CELL LYMPHOMA
     Dosage: DATE OF THE MOST RECENT DOSE OF   POLATUZUMAB VEDOTIN PRIOR TO SAE: 04/DEC/2018
     Route: 042
     Dates: start: 20180807
  4. PLACEBO [Suspect]
     Active Substance: UNSPECIFIED INGREDIENT
     Indication: DIFFUSE LARGE B-CELL LYMPHOMA
     Dosage: DATE OF THE MOST RECENT DOSE OF PLACEBO  PRIOR TO SAE: 04/DEC/2018
     Route: 042
     Dates: start: 20180807
  5. DOXORUBICIN [Suspect]
     Active Substance: DOXORUBICIN
     Indication: DIFFUSE LARGE B-CELL LYMPHOMA
     Dosage: DATE OF THE MOST RECENT DOSE OF DOXORUBICIN (75 MG) PRIOR TO SAE: 04/DEC/2018
     Route: 042
     Dates: start: 20180807
  6. RITUXIMAB. [Suspect]
     Active Substance: RITUXIMAB
     Indication: DIFFUSE LARGE B-CELL LYMPHOMA
     Dosage: DATE OF THE MOST RECENT DOSE OF RITUXIMAB (563 MG) PRIOR TO SAE: 17/JAN/2019
     Route: 042
     Dates: start: 20180806

REACTIONS (1)
  - Rectal cancer [Not Recovered/Not Resolved]

NARRATIVE: CASE EVENT DATE: 20210218
